FAERS Safety Report 7245838-0 (Version None)
Quarter: 2011Q1

REPORT INFORMATION
  Report Type: 
  Country: None (occurrence: None)
  Receive Date: 20110126
  Receipt Date: 20110113
  Transmission Date: 20110831
  Serious: Yes (Hospitalization, Other)
  Sender: FDA-Public Use
  Company Number: JP-MERCK-1012USA03103

PATIENT
  Age: 44 Year
  Sex: Male
  Weight: 90 kg

DRUGS (9)
  1. PEPCID RPD [Suspect]
     Indication: GASTRITIS
     Route: 048
     Dates: start: 20070401, end: 20100129
  2. AMLODIPINE BESYLATE [Concomitant]
     Route: 048
     Dates: start: 20070401
  3. RIVOTRIL [Concomitant]
     Route: 048
     Dates: start: 20070401
  4. ROHYPNOL [Suspect]
     Indication: DELIRIUM
     Route: 048
     Dates: start: 20070401, end: 20100126
  5. NEULEPTIL [Suspect]
     Indication: DELIRIUM
     Route: 048
     Dates: start: 20070401, end: 20100129
  6. TEGRETOL [Concomitant]
     Route: 048
     Dates: start: 20070401
  7. VEGETAMIN B [Suspect]
     Indication: DELIRIUM
     Route: 048
     Dates: start: 20070401, end: 20100129
  8. AKINETON TABLETS [Suspect]
     Indication: DELIRIUM
     Route: 048
     Dates: start: 20070401, end: 20100129
  9. MIANSERIN HYDROCHLORIDE [Concomitant]
     Route: 048
     Dates: start: 20070401

REACTIONS (4)
  - DIABETES MELLITUS [None]
  - DELIRIUM [None]
  - RESTLESS LEGS SYNDROME [None]
  - SLEEP-RELATED EATING DISORDER [None]
